FAERS Safety Report 8766915 (Version 1)
Quarter: 2012Q4

REPORT INFORMATION
  Report Type: 
  Country: CO (occurrence: CO)
  Receive Date: 20120904
  Receipt Date: 20120904
  Transmission Date: 20130627
  Serious: Yes (Hospitalization, Other)
  Sender: FDA-Public Use
  Company Number: CO-PFIZER INC-2012214183

PATIENT
  Age: 47 Year
  Sex: Female

DRUGS (4)
  1. LYRICA [Suspect]
     Indication: MYELOPATHY
     Dosage: 150 mg, 2x/day
     Route: 048
  2. LYRICA [Suspect]
     Indication: SPINAL DISORDER
     Dosage: UNK
     Route: 048
  3. TOPAMAX [Concomitant]
     Indication: EPILEPSY
     Dosage: 50mg in the morning and 100mg at night, every day
     Route: 048
     Dates: start: 2011
  4. KEPPRA [Concomitant]
     Indication: EPILEPSY
     Dosage: 1000 mg, 3x/day
     Route: 048
     Dates: start: 2009

REACTIONS (4)
  - Epilepsy [Unknown]
  - Respiratory arrest [Unknown]
  - Movement disorder [Unknown]
  - Drug ineffective [Not Recovered/Not Resolved]
